FAERS Safety Report 8079571-2 (Version None)
Quarter: 2012Q1

REPORT INFORMATION
  Report Type: 
  Country: None (occurrence: None)
  Receive Date: 20120128
  Receipt Date: 20110825
  Transmission Date: 20120608
  Serious: Yes (Other)
  Sender: FDA-Public Use
  Company Number: US-ABBOTT-11P-163-0850265-00

PATIENT
  Age: 56 Year
  Sex: Female

DRUGS (19)
  1. HUMIRA [Suspect]
     Indication: RHEUMATOID ARTHRITIS
     Dates: start: 20110601
  2. ZETIA [Concomitant]
     Indication: ANXIETY
  3. CELEXA [Concomitant]
     Indication: DEPRESSION
  4. VALIUM [Concomitant]
     Indication: ANXIETY
  5. ACETAMINOPHEN [Concomitant]
     Indication: PAIN
  6. CALCIUM PLUS VIT D [Concomitant]
     Indication: PRODUCT USED FOR UNKNOWN INDICATION
  7. VITAMIN B-12 [Concomitant]
     Indication: PRODUCT USED FOR UNKNOWN INDICATION
  8. DYAZIDE [Concomitant]
     Indication: OEDEMA
  9. COMPAZINE [Concomitant]
     Indication: NAUSEA
  10. IRON [Concomitant]
     Indication: PRODUCT USED FOR UNKNOWN INDICATION
  11. KLOR-CON [Concomitant]
     Indication: PRODUCT USED FOR UNKNOWN INDICATION
  12. RAMIPRIL [Concomitant]
     Indication: HYPERTENSION
     Dosage: 2 1/2MG DAILY
  13. D3 [Concomitant]
     Indication: PRODUCT USED FOR UNKNOWN INDICATION
  14. OXYCONTIN [Concomitant]
     Indication: PAIN
     Dosage: ONCE EVERY 8 HOURS, AS NEEDED
  15. OXYCODONE HCL [Concomitant]
     Indication: PAIN
     Dosage: EVERY 6 HOURS, AS NEEDED
  16. NORVASC [Concomitant]
     Indication: HYPERTENSION
  17. ASPIRIN [Concomitant]
     Indication: PRODUCT USED FOR UNKNOWN INDICATION
  18. FISH OIL [Concomitant]
     Indication: PRODUCT USED FOR UNKNOWN INDICATION
  19. MULTI-VITAMIN [Concomitant]
     Indication: PRODUCT USED FOR UNKNOWN INDICATION

REACTIONS (4)
  - SOMNOLENCE [None]
  - TOE OPERATION [None]
  - SURGERY [None]
  - DRUG INEFFECTIVE [None]
